FAERS Safety Report 4286155-0 (Version None)
Quarter: 2004Q1

REPORT INFORMATION
  Report Type: 
  Country: None (occurrence: None)
  Receive Date: 20040204
  Receipt Date: 20040204
  Transmission Date: 20041129
  Serious: No
  Sender: FDA-Public Use
  Company Number: None

PATIENT
  Sex: Male

DRUGS (1)
  1. HALDOL DEC. 100MG/ML [Suspect]
     Indication: PSYCHOTIC DISORDER
     Dosage: 100 MG Q MONTH INTRAMUSCULAR
     Route: 030
     Dates: start: 20010814, end: 20040203

REACTIONS (1)
  - FLAT AFFECT [None]
